FAERS Safety Report 19301234 (Version 1)
Quarter: 2021Q2

REPORT INFORMATION
  Report Type: Spontaneous
  Country: US (occurrence: US)
  Receive Date: 20210525
  Receipt Date: 20210525
  Transmission Date: 20210717
  Serious: Yes (Death)
  Sender: FDA-Public Use
  Company Number: None

PATIENT
  Age: 52 Year
  Sex: Male

DRUGS (8)
  1. DIGOXIN 0.125MG [Concomitant]
  2. FUROSEMIDE 40 MG [Concomitant]
     Active Substance: FUROSEMIDE
  3. FUROSEMIDE 40 MG [Concomitant]
     Active Substance: FUROSEMIDE
  4. SILDENAFIL. [Suspect]
     Active Substance: SILDENAFIL
     Indication: PULMONARY HYPERTENSION
     Route: 048
     Dates: start: 20201215
  5. ORENITRAM 0.125 MG [Concomitant]
  6. WARFARIN 3 MG [Concomitant]
  7. AMBERISETAN 10 MG [Concomitant]
  8. SPIRONOLOACTONE 25 MG [Concomitant]

REACTIONS (1)
  - Death [None]

NARRATIVE: CASE EVENT DATE: 20210517
